FAERS Safety Report 24297408 (Version 1)
Quarter: 2024Q3

REPORT INFORMATION
  Report Type: Spontaneous
  Country: GB (occurrence: GB)
  Receive Date: 20240909
  Receipt Date: 20240909
  Transmission Date: 20241016
  Serious: No
  Sender: ALKEM
  Company Number: None

PATIENT
  Age: 47 Year
  Sex: Female
  Weight: 129 kg

DRUGS (18)
  1. PREGABALIN [Suspect]
     Active Substance: PREGABALIN
     Indication: Ill-defined disorder
     Dosage: UNK
     Route: 065
     Dates: start: 20231101
  2. ATORVASTATIN [Concomitant]
     Active Substance: ATORVASTATIN
     Indication: Ill-defined disorder
     Dosage: UNK, HS (TAKE ONE AT NIGHT)
     Route: 065
     Dates: start: 20230714
  3. DOXYCYCLINE [Concomitant]
     Active Substance: DOXYCYCLINE\DOXYCYCLINE HYCLATE
     Indication: Ill-defined disorder
     Dosage: UNK (TWO NOW THEN ONE DAILY)
     Route: 065
     Dates: start: 20231016, end: 20231023
  4. FERROUS FUMARATE [Concomitant]
     Active Substance: FERROUS FUMARATE
     Indication: Ill-defined disorder
     Dosage: UNK, BID (TAKE ONE TWICE A DAY)
     Route: 065
     Dates: start: 20230714
  5. FEXOFENADINE [Concomitant]
     Active Substance: FEXOFENADINE HYDROCHLORIDE
     Indication: Ill-defined disorder
     Dosage: UNK, QD (TAKE ONE DAILY)
     Route: 065
     Dates: start: 20230714
  6. FLUOXETINE [Concomitant]
     Active Substance: FLUOXETINE HYDROCHLORIDE
     Indication: Ill-defined disorder
     Dosage: UNK, QD (3 TO BE TAKEN EACH MORNING)
     Route: 065
     Dates: start: 20230714
  7. GABAPENTIN [Concomitant]
     Active Substance: GABAPENTIN
     Indication: Ill-defined disorder
     Dosage: 3 DOSAGE FORM, TID (TAKE THREE TABLETS THREE TIMES A DAY)
     Route: 065
     Dates: start: 20230714
  8. HYDROCORTISONE [Concomitant]
     Active Substance: HYDROCORTISONE\HYDROCORTISONE ACETATE
     Indication: Ill-defined disorder
     Dosage: 2 DOSAGE FORM, BID (TAKE TWO TABLETS TWICE A DAY LONG TERM)
     Route: 065
     Dates: start: 20230714
  9. MONTELUKAST [Concomitant]
     Active Substance: MONTELUKAST SODIUM
     Indication: Ill-defined disorder
     Dosage: UNK, QD (TAKE ONE DAILY)
     Route: 065
     Dates: start: 20230714
  10. MORPHINE SULFATE [Concomitant]
     Active Substance: MORPHINE SULFATE
     Indication: Ill-defined disorder
     Dosage: UNK (TAKE 2.5ML TO 5ML UP TO EVERY FOUR HOURS FOR BR)
     Route: 065
     Dates: start: 20231101, end: 20231106
  11. NACSYS [Concomitant]
     Indication: Ill-defined disorder
     Dosage: 1 DOSAGE FORM, QD (TAKE ONE DISSOLVED TABLET DAILY)
     Route: 048
     Dates: start: 20230714
  12. ESTRADIOL [Concomitant]
     Active Substance: ESTRADIOL
     Indication: Ill-defined disorder
     Dosage: UNK, QD (APPLY ONCE DAILY)
     Route: 065
     Dates: start: 20230313
  13. OMEPRAZOLE [Concomitant]
     Active Substance: OMEPRAZOLE
     Indication: Ill-defined disorder
     Dosage: UNK, QD (TAKE ONE DAILY)
     Route: 065
     Dates: start: 20230714
  14. PREGABALIN [Concomitant]
     Active Substance: PREGABALIN
     Indication: Ill-defined disorder
     Dosage: UNK (TAKE ONE TWICE A DAY STARTING AFTER TAKING 75MG)
     Route: 065
     Dates: start: 20231016
  15. ALBUTEROL [Concomitant]
     Active Substance: ALBUTEROL
     Indication: Ill-defined disorder
     Dosage: UNK (INHALE 1 DOSE 3-4 TIMES/DAY)
     Dates: start: 20230313
  16. BECLOMETHASONE DIPROPIONATE\FORMOTEROL FUMARATE\GLYCOPYRROLATE [Concomitant]
     Active Substance: BECLOMETHASONE DIPROPIONATE\FORMOTEROL FUMARATE\GLYCOPYRROLATE
     Indication: Ill-defined disorder
     Dosage: UNK, BID (INHALE TWO PUFFS TWICE DAILY)
     Dates: start: 20230314
  17. UTROGESTAN [Concomitant]
     Active Substance: PROGESTERONE
     Indication: Ill-defined disorder
     Dosage: 1 DOSAGE FORM, QD (TAKE ONE CAPSULE EACH DAY FROM DAY 1-25 OF YO)
     Route: 065
     Dates: start: 20230313
  18. ACETAMINOPHEN\CODEINE PHOSPHATE [Concomitant]
     Active Substance: ACETAMINOPHEN\CODEINE PHOSPHATE
     Indication: Ill-defined disorder
     Dosage: UNK, QID (TAKE ONE OR TWO TABLETS UP TO FOUR TIMES A DAY)
     Route: 065
     Dates: start: 20230313

REACTIONS (1)
  - Dizziness [Recovered/Resolved]

NARRATIVE: CASE EVENT DATE: 20231101
